FAERS Safety Report 23299730 (Version 1)
Quarter: 2023Q4

REPORT INFORMATION
  Report Type: Spontaneous
  Country: US (occurrence: US)
  Receive Date: 20231215
  Receipt Date: 20231215
  Transmission Date: 20240110
  Serious: Yes (Other)
  Sender: FDA-Public Use
  Company Number: US-STRIDES ARCOLAB LIMITED-2023SP011262

PATIENT
  Age: 71 Year
  Sex: Male

DRUGS (4)
  1. PROPRANOLOL [Suspect]
     Active Substance: PROPRANOLOL HYDROCHLORIDE
     Indication: Bundle branch block left
     Dosage: 120 MILLIGRAM, PER DAY
     Route: 065
  2. PROPRANOLOL [Suspect]
     Active Substance: PROPRANOLOL HYDROCHLORIDE
     Indication: Chest pain
  3. RANOLAZINE [Concomitant]
     Active Substance: RANOLAZINE
     Indication: Ischaemia
     Dosage: UNK
     Route: 065
  4. RANOLAZINE [Concomitant]
     Active Substance: RANOLAZINE
     Indication: Angiopathy

REACTIONS (2)
  - Therapy non-responder [Unknown]
  - Off label use [Unknown]
